FAERS Safety Report 8274472-9 (Version None)
Quarter: 2012Q2

REPORT INFORMATION
  Report Type: 
  Country: None (occurrence: None)
  Receive Date: 20120411
  Receipt Date: 20120327
  Transmission Date: 20120825
  Serious: Yes (Hospitalization, Disabling)
  Sender: FDA-Public Use
  Company Number: JP-ROCHE-1013165

PATIENT
  Age: 31 Year
  Sex: Female

DRUGS (28)
  1. TACROLIMUS [Suspect]
     Route: 048
     Dates: start: 20080806, end: 20081016
  2. MYCOPHENOLATE MOFETIL (CELLCEPT) [Suspect]
     Route: 048
     Dates: start: 20110120
  3. TACROLIMUS [Suspect]
     Indication: PROPHYLAXIS AGAINST TRANSPLANT REJECTION
     Dosage: 3-10MG/DAY
     Route: 048
     Dates: start: 20071215, end: 20071220
  4. INSULIN [Concomitant]
     Indication: TYPE 1 DIABETES MELLITUS
     Dosage: 40-50IU
     Route: 058
  5. NOVOLIN R [Concomitant]
     Indication: TYPE 1 DIABETES MELLITUS
     Route: 058
     Dates: start: 20071221, end: 20071227
  6. LANTUS [Concomitant]
     Route: 058
  7. PREDNISOLONE [Suspect]
     Indication: PROPHYLAXIS AGAINST TRANSPLANT REJECTION
     Route: 048
     Dates: start: 20071227
  8. MYCOPHENOLATE MOFETIL (CELLCEPT) [Suspect]
     Route: 048
     Dates: start: 20080213, end: 20080825
  9. MYCOPHENOLATE MOFETIL (CELLCEPT) [Suspect]
     Route: 048
     Dates: start: 20110228, end: 20110703
  10. NOVOLIN N [Concomitant]
     Indication: TYPE 1 DIABETES MELLITUS
     Dosage: 16-50U/DAY
     Route: 058
     Dates: start: 20071218, end: 20080114
  11. NOVORAPID [Concomitant]
     Indication: TYPE 1 DIABETES MELLITUS
     Dosage: 10-45U/DAY
     Route: 058
     Dates: start: 20080115
  12. MYCOPHENOLATE MOFETIL (CELLCEPT) [Suspect]
     Route: 048
     Dates: start: 20110121, end: 20110227
  13. MYCOPHENOLATE MOFETIL (CELLCEPT) [Suspect]
     Route: 048
     Dates: start: 20110724, end: 20111111
  14. TACROLIMUS [Suspect]
     Route: 048
     Dates: end: 20080805
  15. SIMULECT [Concomitant]
     Route: 042
     Dates: start: 20071224, end: 20071224
  16. RITUXAN [Concomitant]
     Indication: PANCREAS TRANSPLANT REJECTION
     Dosage: DOSAGE IS UNCERTAIN.
     Route: 042
     Dates: start: 20100701
  17. MYCOPHENOLATE MOFETIL (CELLCEPT) [Suspect]
     Route: 048
     Dates: start: 20110119
  18. TACROLIMUS [Suspect]
     Route: 048
     Dates: start: 20081106
  19. SIMULECT [Concomitant]
     Indication: PROPHYLAXIS AGAINST TRANSPLANT REJECTION
     Route: 042
     Dates: start: 20071220, end: 20071220
  20. MYCOPHENOLATE MOFETIL (CELLCEPT) [Suspect]
     Route: 048
     Dates: start: 20080826
  21. TACROLIMUS [Suspect]
     Dosage: 3-10MG/DAY
     Route: 048
     Dates: start: 20071223
  22. TACROLIMUS [Suspect]
     Route: 042
     Dates: start: 20071221, end: 20071222
  23. SOLU-MEDROL [Concomitant]
     Indication: PROPHYLAXIS AGAINST TRANSPLANT REJECTION
     Route: 042
     Dates: start: 20071220, end: 20071220
  24. LEVEMIR [Concomitant]
     Indication: TYPE 1 DIABETES MELLITUS
     Dosage: 15-24U/DAY
     Route: 058
     Dates: start: 20080204
  25. METHYLPREDNISOLONE SODIUM SUCCINATE [Concomitant]
     Indication: KIDNEY TRANSPLANT REJECTION
     Route: 042
     Dates: start: 20110601, end: 20110601
  26. MYCOPHENOLATE MOFETIL (CELLCEPT) [Suspect]
     Indication: PROPHYLAXIS AGAINST TRANSPLANT REJECTION
     Route: 048
     Dates: start: 20071221, end: 20080212
  27. TACROLIMUS [Suspect]
     Route: 048
     Dates: start: 20081017, end: 20081105
  28. BREDININ [Concomitant]
     Indication: PROPHYLAXIS AGAINST TRANSPLANT REJECTION
     Route: 048
     Dates: start: 20110704, end: 20111107

REACTIONS (4)
  - DIARRHOEA [None]
  - COMPLICATIONS OF TRANSPLANTED KIDNEY [None]
  - ENTEROCOLITIS [None]
  - ANAEMIA [None]
